FAERS Safety Report 6037730-4 (Version None)
Quarter: 2009Q1

REPORT INFORMATION
  Report Type: 
  Country: None (occurrence: None)
  Receive Date: 20090113
  Receipt Date: 20090105
  Transmission Date: 20090719
  Serious: Yes (Hospitalization)
  Sender: FDA-Public Use
  Company Number: 2008S1000407

PATIENT
  Age: 70 Year
  Sex: Male
  Weight: 82 kg

DRUGS (10)
  1. CUBICIN [Suspect]
     Indication: ULCER
     Dosage: 4 MG/KG; Q24H; IV
     Route: 042
     Dates: start: 20071005, end: 20071127
  2. ZOSYN [Concomitant]
  3. NEURONTIN [Concomitant]
  4. CYMBALTA [Concomitant]
  5. LYRICA [Concomitant]
  6. MULTIVITAMIN /01229101/ [Concomitant]
  7. FOSINOPRIL SODIUM [Concomitant]
  8. LIPITOR [Concomitant]
  9. ROZEREM [Concomitant]
  10. HUMALOG [Concomitant]

REACTIONS (9)
  - BLOOD PRESSURE SYSTOLIC INCREASED [None]
  - DECREASED APPETITE [None]
  - EOSINOPHILIC PNEUMONIA [None]
  - FATIGUE [None]
  - HEART RATE INCREASED [None]
  - INTERSTITIAL LUNG DISEASE [None]
  - OBLITERATIVE BRONCHIOLITIS [None]
  - ORGANISING PNEUMONIA [None]
  - WEIGHT DECREASED [None]
